FAERS Safety Report 13896810 (Version 1)
Quarter: 2017Q3

REPORT INFORMATION
  Report Type: Spontaneous
  Country: US (occurrence: US)
  Receive Date: 20170823
  Receipt Date: 20170823
  Transmission Date: 20171127
  Serious: Yes (Hospitalization, Other)
  Sender: FDA-Public Use
  Company Number: US-TEVA-798970USA

PATIENT
  Age: 89 Year
  Sex: Female

DRUGS (1)
  1. METOPROLOL SUCCINATE. [Suspect]
     Active Substance: METOPROLOL SUCCINATE
     Dosage: 150 MILLIGRAM DAILY; USING THE PRODUCT FOR A NUMBER OF YEARS
     Route: 065

REACTIONS (6)
  - Fall [Unknown]
  - External ear pain [Unknown]
  - Dysphagia [Unknown]
  - Choking [Unknown]
  - Facial bones fracture [Unknown]
  - Wrong technique in product usage process [Unknown]
